FAERS Safety Report 4917982-1 (Version None)
Quarter: 2006Q1

REPORT INFORMATION
  Report Type: 
  Country: None (occurrence: None)
  Receive Date: 20060221
  Receipt Date: 20051017
  Transmission Date: 20060701
  Serious: Yes (Disabling)
  Sender: FDA-Public Use
  Company Number: US-MERCK-0510USA07783

PATIENT
  Age: 59 Year
  Sex: Male
  Weight: 111 kg

DRUGS (8)
  1. VIOXX [Suspect]
     Indication: OSTEOARTHRITIS
     Route: 048
     Dates: start: 20030623, end: 20040412
  2. NASACORT [Concomitant]
     Route: 065
  3. PROTONIX [Concomitant]
     Indication: GASTROOESOPHAGEAL REFLUX DISEASE
     Route: 065
  4. ALEVE [Concomitant]
     Route: 065
  5. TYLENOL [Concomitant]
     Route: 065
  6. CLARITIN [Concomitant]
     Route: 065
  7. GLUCOSAMINE [Concomitant]
     Route: 065
  8. CENTRUM SILVER [Concomitant]
     Route: 065

REACTIONS (5)
  - CONJUNCTIVITIS ALLERGIC [None]
  - DERMATITIS [None]
  - HYPERTENSION [None]
  - OPTIC ISCHAEMIC NEUROPATHY [None]
  - PUPILLARY REFLEX IMPAIRED [None]
